FAERS Safety Report 16330252 (Version 2)
Quarter: 2019Q2

REPORT INFORMATION
  Report Type: Spontaneous
  Country: US (occurrence: US)
  Receive Date: 20190520
  Receipt Date: 20190604
  Transmission Date: 20190711
  Serious: No
  Sender: FDA-Public Use
  Company Number: US-ASTRAZENECA-2019SE63522

PATIENT
  Age: 697 Month
  Sex: Male

DRUGS (2)
  1. BYDUREON [Suspect]
     Active Substance: EXENATIDE
     Indication: TYPE 2 DIABETES MELLITUS
     Dosage: 2 MG, ONCE A WEEK (SDT)
     Route: 058
     Dates: start: 2017, end: 201902
  2. BYDUREON [Suspect]
     Active Substance: EXENATIDE
     Indication: TYPE 2 DIABETES MELLITUS
     Dosage: 2 MG, ONCE A WEEK (PEN)
     Route: 058
     Dates: start: 20190401

REACTIONS (9)
  - Injection site pain [Unknown]
  - Injection site haemorrhage [Unknown]
  - Condition aggravated [Unknown]
  - Incorrect dose administered by device [Unknown]
  - Wrong technique in product usage process [Unknown]
  - Therapy cessation [Unknown]
  - Device leakage [Unknown]
  - Inappropriate schedule of product administration [Unknown]
  - Device issue [Unknown]

NARRATIVE: CASE EVENT DATE: 201902
